FAERS Safety Report 8785468 (Version 1)
Quarter: 2012Q4

REPORT INFORMATION
  Report Type: 
  Country: NL (occurrence: NL)
  Receive Date: 20120914
  Receipt Date: 20120914
  Transmission Date: 20130627
  Serious: Yes (Congenital Anomaly)
  Sender: FDA-Public Use
  Company Number: NL-SANOFI-AVENTIS-2012SA064533

PATIENT
  Sex: Female

DRUGS (1)
  1. TELFAST [Suspect]
     Indication: DRUG USE FOR UNKNOWN INDICATION
     Route: 064

REACTIONS (2)
  - Cerebral dysgenesis [Unknown]
  - Foetal exposure during pregnancy [Unknown]
